FAERS Safety Report 7018500-7 (Version None)
Quarter: 2010Q3

REPORT INFORMATION
  Report Type: 
  Country: None (occurrence: None)
  Receive Date: 20100924
  Receipt Date: 20100911
  Transmission Date: 20110219
  Serious: Yes (Other)
  Sender: FDA-Public Use
  Company Number: AUR-APL-2010-02274

PATIENT
  Sex: Male

DRUGS (1)
  1. CEFUROXIME [Suspect]
     Dosage: ORAL
     Route: 048

REACTIONS (3)
  - CHOKING [None]
  - DYSPHAGIA [None]
  - FOREIGN BODY [None]
